FAERS Safety Report 14400531 (Version 1)
Quarter: 2018Q1

REPORT INFORMATION
  Report Type: Spontaneous
  Country: FR (occurrence: FR)
  Receive Date: 20180117
  Receipt Date: 20180117
  Transmission Date: 20180509
  Serious: Yes (Hospitalization)
  Sender: FDA-Public Use
  Company Number: FR-ROCHE-2054277

PATIENT
  Age: 19 Year
  Sex: Female

DRUGS (3)
  1. LOXAPAC [Suspect]
     Active Substance: LOXAPINE
     Indication: PSYCHOTIC DISORDER
     Route: 030
  2. VALIUM [Suspect]
     Active Substance: DIAZEPAM
     Indication: PSYCHOTIC DISORDER
     Route: 048
  3. HALDOL [Suspect]
     Active Substance: HALOPERIDOL
     Indication: PSYCHOTIC DISORDER
     Dosage: 2 MG/ML
     Route: 048

REACTIONS (1)
  - Mixed liver injury [Recovering/Resolving]

NARRATIVE: CASE EVENT DATE: 201711
